FAERS Safety Report 9377485 (Version 2)
Quarter: 2013Q4

REPORT INFORMATION
  Report Type: Spontaneous
  Country: US (occurrence: US)
  Receive Date: 20130701
  Receipt Date: 20131001
  Transmission Date: 20140711
  Serious: Yes (Hospitalization, Other)
  Sender: FDA-Public Use
  Company Number: US-MERCK-1306USA013171

PATIENT
  Sex: Female

DRUGS (10)
  1. FOSAMAX [Suspect]
     Indication: OSTEOPOROSIS
     Dosage: 10 MG, QD
     Route: 048
     Dates: start: 20001117
  2. FOSAMAX [Suspect]
     Dosage: 70 MG, QW
     Route: 048
     Dates: start: 20010209, end: 20050831
  3. FOSAMAX [Suspect]
     Dosage: 70 MG, QW
     Route: 048
     Dates: start: 200605, end: 200802
  4. FOSAMAX [Suspect]
     Dosage: 70 MG, QW
     Route: 048
     Dates: start: 20080305
  5. ALENDRONATE SODIUM [Suspect]
     Indication: OSTEOPOROSIS
     Dosage: 70 MG, QW
     Route: 048
     Dates: start: 200806, end: 201007
  6. VITAMINS (UNSPECIFIED) [Concomitant]
     Dosage: 1 DF, QD
     Dates: start: 1966
  7. OMEGA-3 MARINE TRIGLYCERIDES [Concomitant]
     Dosage: 1 DF, QD
     Dates: start: 1993
  8. FLAXSEED [Concomitant]
     Dosage: 1 DF, QD
     Dates: start: 1993
  9. SYNTHROID [Concomitant]
     Indication: HYPOTHYROIDISM
  10. LEVOTHYROXINE SODIUM [Concomitant]

REACTIONS (26)
  - Femur fracture [Recovering/Resolving]
  - Intramedullary rod insertion [Unknown]
  - Femur fracture [Unknown]
  - Open reduction of fracture [Unknown]
  - Bone graft [Unknown]
  - Fracture nonunion [Unknown]
  - Medical device removal [Unknown]
  - Intramedullary rod insertion [Unknown]
  - Fracture debridement [Unknown]
  - Bone graft [Unknown]
  - Device breakage [Unknown]
  - Medical device removal [Unknown]
  - Adverse event [Unknown]
  - Limb injury [Unknown]
  - Blood cholesterol increased [Unknown]
  - Hypertension [Unknown]
  - Rheumatoid arthritis [Unknown]
  - Biopsy breast [Unknown]
  - Anaemia of chronic disease [Unknown]
  - Tendinous contracture [Unknown]
  - Hypotension [Unknown]
  - Haemolytic anaemia [Unknown]
  - Limb discomfort [Unknown]
  - Neck pain [Unknown]
  - Nausea [Unknown]
  - Arthralgia [Unknown]
